FAERS Safety Report 7276763-7 (Version None)
Quarter: 2011Q1

REPORT INFORMATION
  Report Type: 
  Country: None (occurrence: None)
  Receive Date: 20110206
  Receipt Date: 20110112
  Transmission Date: 20110831
  Serious: No
  Sender: FDA-Public Use
  Company Number: US-BAYER-2011-004442

PATIENT
  Sex: Male
  Weight: 210 kg

DRUGS (4)
  1. ALEVE (CAPLET) [Suspect]
     Indication: ARTHRITIS
     Dosage: UNK
  2. CALCIUM [CALCIUM] [Concomitant]
  3. GLUCOSAMINE [GLUCOSAMINE] [Concomitant]
  4. ALEVE (CAPLET) [Suspect]
     Indication: PAIN

REACTIONS (1)
  - CONSTIPATION [None]
